FAERS Safety Report 4825345-2 (Version None)
Quarter: 2005Q4

REPORT INFORMATION
  Report Type: 
  Country: None (occurrence: None)
  Receive Date: 20051111
  Receipt Date: 20051101
  Transmission Date: 20060501
  Serious: Yes (Other)
  Sender: FDA-Public Use
  Company Number: US-JNJFOC-20051101119

PATIENT
  Age: 51 Year
  Sex: Female
  Weight: 83.92 kg

DRUGS (4)
  1. DURAGESIC-100 [Suspect]
     Route: 062
  2. DEPAKOTE [Concomitant]
     Dosage: START DATE: TWO YEARS AGO
  3. ELAVIL [Concomitant]
     Dosage: START DATE: TWO YEARS AGO
  4. ATENOLOL [Concomitant]
     Dates: start: 20050701

REACTIONS (3)
  - DRUG WITHDRAWAL SYNDROME [None]
  - HYPERTENSION [None]
  - TREATMENT NONCOMPLIANCE [None]
